FAERS Safety Report 9117180 (Version 1)
Quarter: 2013Q1

REPORT INFORMATION
  Report Type: Spontaneous
  Country: ZA (occurrence: ZA)
  Receive Date: 20130225
  Receipt Date: 20130225
  Transmission Date: 20140127
  Serious: Yes (Death)
  Sender: FDA-Public Use
  Company Number: ZA-JNJFOC-20130212853

PATIENT
  Sex: 0

DRUGS (3)
  1. DOXORUBICIN [Suspect]
     Indication: BONE SARCOMA
     Route: 042
  2. CISPLATIN [Suspect]
     Indication: BONE SARCOMA
     Route: 065
  3. CHEMOTHERAPY, NOS [Suspect]
     Indication: BONE SARCOMA
     Route: 065

REACTIONS (3)
  - Disease progression [Fatal]
  - Death [Fatal]
  - Off label use [Unknown]
